FAERS Safety Report 24059165 (Version 1)
Quarter: 2024Q3

REPORT INFORMATION
  Report Type: Spontaneous
  Country: CH (occurrence: CH)
  Receive Date: 20240708
  Receipt Date: 20240708
  Transmission Date: 20241016
  Serious: Yes (Other)
  Sender: NORDIC PHARMA
  Company Number: CH-NORDICGR-056677

PATIENT

DRUGS (1)
  1. METHOTREXATE [Suspect]
     Active Substance: METHOTREXATE
     Indication: Product used for unknown indication

REACTIONS (7)
  - Inappropriate schedule of product administration [Unknown]
  - Accidental overdose [Unknown]
  - Stomatitis [Unknown]
  - Gingivitis [Unknown]
  - Rash [Unknown]
  - Vomiting [Unknown]
  - Pancytopenia [Unknown]
